FAERS Safety Report 23812662 (Version 1)
Quarter: 2024Q2

REPORT INFORMATION
  Report Type: Spontaneous
  Country: CH (occurrence: CH)
  Receive Date: 20240503
  Receipt Date: 20240503
  Transmission Date: 20240716
  Serious: Yes (Other)
  Sender: FDA-Public Use
  Company Number: CH-ALKEM LABORATORIES LIMITED-CH-ALKEM-2024-09037

PATIENT

DRUGS (1)
  1. TOPIRAMATE [Suspect]
     Active Substance: TOPIRAMATE
     Indication: Epilepsy
     Dosage: UNK
     Route: 065

REACTIONS (2)
  - Blood brain barrier defect [Unknown]
  - Angle closure glaucoma [Recovering/Resolving]
